FAERS Safety Report 24866351 (Version 1)
Quarter: 2025Q1

REPORT INFORMATION
  Report Type: Spontaneous
  Country: JP (occurrence: JP)
  Receive Date: 20250121
  Receipt Date: 20250121
  Transmission Date: 20250408
  Serious: Yes (Other)
  Sender: REGENERON
  Company Number: JP-BAYER-2025A008767

PATIENT
  Sex: Male

DRUGS (2)
  1. EYLEA HD [Suspect]
     Active Substance: AFLIBERCEPT
     Indication: Macular degeneration
     Dates: start: 202411
  2. EYLEA HD [Suspect]
     Active Substance: AFLIBERCEPT
     Dates: start: 202501

REACTIONS (4)
  - Blindness unilateral [Unknown]
  - Macular oedema [Unknown]
  - Visual acuity reduced [Unknown]
  - Visual impairment [Unknown]
